FAERS Safety Report 9637402 (Version 4)
Quarter: 2013Q4

REPORT INFORMATION
  Report Type: Report from Study
  Country: US (occurrence: US)
  Receive Date: 20131022
  Receipt Date: 20131113
  Transmission Date: 20140711
  Serious: Yes (Other)
  Sender: FDA-Public Use
  Company Number: PHHY2011US11690

PATIENT
  Age: 54 Year
  Sex: Male

DRUGS (9)
  1. EXTAVIA [Suspect]
     Indication: MULTIPLE SCLEROSIS
     Dosage: UNK UKN, UNK
     Route: 058
     Dates: start: 2006
  2. EXTAVIA [Suspect]
     Dosage: 0.25 MG, QOD
     Route: 058
     Dates: start: 201102
  3. EXTAVIA [Suspect]
     Dosage: 0.3 G, QOD, EXTAVIA VIAL
     Route: 058
  4. EXTAVIA [Suspect]
     Dosage: 0.25 MG, QOD
     Route: 058
  5. OXYCONTIN [Concomitant]
     Dosage: 30 MG, BID
  6. OXYCODONE [Concomitant]
     Dosage: UNK UKN, PRN
  7. ADVIL [Concomitant]
     Dosage: UNK UKN, UNK
  8. TYLENOL [Concomitant]
     Dosage: UNK UKN, UNK
  9. OPIOIDS [Concomitant]
     Dosage: UNK UKN, UNK
     Dates: start: 2003

REACTIONS (13)
  - Neuropathy peripheral [Unknown]
  - Spinal disorder [Not Recovered/Not Resolved]
  - Pain in extremity [Not Recovered/Not Resolved]
  - Dizziness [Unknown]
  - Influenza like illness [Not Recovered/Not Resolved]
  - Oropharyngeal pain [Not Recovered/Not Resolved]
  - Rhinorrhoea [Not Recovered/Not Resolved]
  - Myalgia [Not Recovered/Not Resolved]
  - Headache [Not Recovered/Not Resolved]
  - Asthenia [Not Recovered/Not Resolved]
  - Fatigue [Not Recovered/Not Resolved]
  - Chills [Unknown]
  - Hyperhidrosis [Unknown]
